FAERS Safety Report 10293067 (Version 1)
Quarter: 2014Q3

REPORT INFORMATION
  Report Type: Spontaneous
  Country: US (occurrence: US)
  Receive Date: 20140710
  Receipt Date: 20140710
  Transmission Date: 20150326
  Serious: No
  Sender: FDA-Public Use
  Company Number: US-PFIZER INC-2014191800

PATIENT
  Age: 39 Year
  Sex: Male

DRUGS (3)
  1. NICOTINE TRANSDERMAL SYSTEM [Suspect]
     Active Substance: NICOTINE
     Dosage: UNK
  2. CHANTIX [Suspect]
     Active Substance: VARENICLINE TARTRATE
     Dosage: UNK
  3. NICORETTE [Suspect]
     Active Substance: NICOTINE
     Dosage: UNK

REACTIONS (1)
  - Drug effect incomplete [Unknown]
